FAERS Safety Report 24878329 (Version 1)
Quarter: 2025Q1

REPORT INFORMATION
  Report Type: Spontaneous
  Country: US (occurrence: None)
  Receive Date: 20250122
  Receipt Date: 20250122
  Transmission Date: 20250409
  Serious: No
  Sender: FDA-CTU
  Company Number: None

PATIENT

DRUGS (1)
  1. CALCIPOTRIENE [Suspect]
     Active Substance: CALCIPOTRIENE

REACTIONS (1)
  - Drug ineffective [None]
